FAERS Safety Report 8515367-2 (Version None)
Quarter: 2012Q3

REPORT INFORMATION
  Report Type: 
  Country: None (occurrence: None)
  Receive Date: 20120717
  Receipt Date: 20120706
  Transmission Date: 20120928
  Serious: Yes (Hospitalization)
  Sender: FDA-Public Use
  Company Number: US-ELI_LILLY_AND_COMPANY-US201207003576

PATIENT
  Sex: Female

DRUGS (10)
  1. CYMBALTA [Concomitant]
     Indication: DEPRESSION
     Dosage: 20 MG, TID
  2. TOPROL-XL [Concomitant]
     Dosage: UNK
  3. BYETTA [Concomitant]
     Dosage: UNK
  4. TOVIAZ [Concomitant]
     Dosage: UNK
  5. FORTEO [Suspect]
     Indication: OSTEOPOROSIS
     Dosage: 20 UG, QD
  6. METFORMIN HYDROCHLORIDE [Concomitant]
     Dosage: UNK
  7. DIOVAN [Concomitant]
     Dosage: UNK
  8. ELAVIL [Concomitant]
     Dosage: UNK
  9. ZOCOR [Concomitant]
     Dosage: UNK
  10. AMARYL [Concomitant]
     Dosage: UNK

REACTIONS (4)
  - FEMUR FRACTURE [None]
  - KNEE OPERATION [None]
  - KNEE ARTHROPLASTY [None]
  - ARTHROPATHY [None]
